FAERS Safety Report 7393001-5 (Version None)
Quarter: 2011Q2

REPORT INFORMATION
  Report Type: 
  Country: None (occurrence: None)
  Receive Date: 20110404
  Receipt Date: 20110322
  Transmission Date: 20111010
  Serious: Yes (Death, Other)
  Sender: FDA-Public Use
  Company Number: IT-WATSON-2011-04060

PATIENT

DRUGS (6)
  1. PREDNISONE (WATSON LABORATORIES) [Suspect]
     Indication: HEPATITIS
     Dosage: UNK
  2. AZATHIOPRINE [Suspect]
     Indication: ANAEMIA HAEMOLYTIC AUTOIMMUNE
  3. PREDNISONE (WATSON LABORATORIES) [Suspect]
     Indication: ANAEMIA HAEMOLYTIC AUTOIMMUNE
  4. CYCLOPHOSPHAMIDE [Suspect]
     Indication: HEPATITIS
     Dosage: UNK
  5. CYCLOPHOSPHAMIDE [Suspect]
     Indication: ANAEMIA HAEMOLYTIC AUTOIMMUNE
  6. AZATHIOPRINE [Suspect]
     Indication: HEPATITIS
     Dosage: UNK

REACTIONS (2)
  - MULTI-ORGAN FAILURE [None]
  - TREATMENT FAILURE [None]
